FAERS Safety Report 15406343 (Version 1)
Quarter: 2018Q3

REPORT INFORMATION
  Report Type: Spontaneous
  Country: US (occurrence: US)
  Receive Date: 20180920
  Receipt Date: 20180920
  Transmission Date: 20181010
  Serious: No
  Sender: FDA-Public Use
  Company Number: US-JNJFOC-20180908344

PATIENT
  Age: 66 Year
  Sex: Female
  Weight: 74.84 kg

DRUGS (2)
  1. IMODIUM MULTI?SYMPTOM RELIEF [Suspect]
     Active Substance: DIMETHICONE\LOPERAMIDE HYDROCHLORIDE
     Indication: COLOSTOMY
     Route: 048
     Dates: start: 20150901, end: 20180831
  2. IMODIUM MULTI?SYMPTOM RELIEF [Suspect]
     Active Substance: DIMETHICONE\LOPERAMIDE HYDROCHLORIDE
     Indication: DIARRHOEA
     Route: 048
     Dates: start: 20150901, end: 20180831

REACTIONS (1)
  - Inappropriate schedule of drug administration [Unknown]
